FAERS Safety Report 7908877-X (Version None)
Quarter: 2011Q4

REPORT INFORMATION
  Report Type: 
  Country: None (occurrence: None)
  Receive Date: 20111111
  Receipt Date: 20100930
  Transmission Date: 20120403
  Serious: No
  Sender: FDA-Public Use
  Company Number: US-BAYER-201037828NA

PATIENT
  Age: 49 Year
  Sex: Female

DRUGS (3)
  1. CLIMARA [Suspect]
     Indication: MENOPAUSAL SYMPTOMS
  2. CLIMARA [Suspect]
     Indication: FATIGUE
     Dosage: 100 MCG/24HR, UNK
     Route: 062
  3. CLIMARA [Suspect]
     Indication: FEELING ABNORMAL

REACTIONS (2)
  - APPLICATION SITE RASH [None]
  - PRODUCT ADHESION ISSUE [None]
